FAERS Safety Report 8106865-4 (Version None)
Quarter: 2012Q1

REPORT INFORMATION
  Report Type: 
  Country: None (occurrence: None)
  Receive Date: 20120202
  Receipt Date: 20120130
  Transmission Date: 20120608
  Serious: Yes (Death)
  Sender: FDA-Public Use
  Company Number: US-SANOFI-AVENTIS-2011SA078677

PATIENT
  Age: 64 Year
  Sex: Female
  Weight: 138 kg

DRUGS (7)
  1. ATORVASTATIN [Concomitant]
  2. VALSARTAN [Concomitant]
     Indication: HYPERTENSION
  3. CARDURA [Concomitant]
  4. PLAVIX [Suspect]
     Indication: ANGIOPLASTY
     Route: 048
     Dates: start: 20080101, end: 20111022
  5. LOTREL [Concomitant]
  6. PLAVIX [Suspect]
     Indication: CORONARY ARTERY DISEASE
     Route: 048
     Dates: start: 20080101, end: 20111022
  7. HYDROCHLOROTHIAZIDE [Concomitant]

REACTIONS (1)
  - RENAL FAILURE [None]
